FAERS Safety Report 6931020-0 (Version None)
Quarter: 2010Q3

REPORT INFORMATION
  Report Type: 
  Country: None (occurrence: None)
  Receive Date: 20100817
  Receipt Date: 20100817
  Transmission Date: 20110219
  Serious: Yes (Hospitalization, Other)
  Sender: FDA-Public Use
  Company Number: None

PATIENT
  Age: 20 Year
  Sex: Female
  Weight: 45.3597 kg

DRUGS (1)
  1. PROMACTA [Suspect]
     Indication: EVANS SYNDROME
     Dosage: 50 MG DAILY PO
     Route: 048
     Dates: start: 20100701, end: 20100809

REACTIONS (2)
  - PLEURITIC PAIN [None]
  - PULMONARY EMBOLISM [None]
